FAERS Safety Report 16733016 (Version 2)
Quarter: 2019Q4

REPORT INFORMATION
  Report Type: Spontaneous
  Country: US (occurrence: US)
  Receive Date: 20190823
  Receipt Date: 20191125
  Transmission Date: 20200122
  Serious: Yes (Hospitalization, Other)
  Sender: FDA-Public Use
  Company Number: US-009507513-1908USA006357

PATIENT
  Sex: Female
  Weight: 83.91 kg

DRUGS (7)
  1. NORCO [Interacting]
     Active Substance: ACETAMINOPHEN\HYDROCODONE BITARTRATE
     Dosage: 7.5-325 MILLIGRAM
  2. ZOCOR [Suspect]
     Active Substance: SIMVASTATIN
     Dosage: 20 MG BY MOUTH ONE DAILY AT BEDTIME
     Route: 048
  3. TIZANIDINE HYDROCHLORIDE. [Concomitant]
     Active Substance: TIZANIDINE HYDROCHLORIDE
     Indication: HYPOTONIA
     Dosage: 2 MG EVERY 8 HOURS, STARTED IN DECEMBER 2018 OR JANUARY 2019
     Dates: start: 201812, end: 201907
  4. LYRICA [Interacting]
     Active Substance: PREGABALIN
     Indication: NEUROPATHY PERIPHERAL
     Dosage: 200 MG BY MOUTH EVERY 8 HOURS, 3 TIMES A DAY
     Route: 048
     Dates: start: 2016
  5. METFORMIN [Concomitant]
     Active Substance: METFORMIN HYDROCHLORIDE
     Dosage: 500 MG 1 TABLET TWICE A DAY, 1 IN THE MORNING AND 1 IN THE EVENING
  6. PAROXETINE. [Concomitant]
     Active Substance: PAROXETINE
     Indication: DEPRESSION
     Dosage: 40 MG BY MOUTH ONCE A DAY
     Route: 048
     Dates: start: 201802
  7. AMITRIPTYLINE HYDROCHLORIDE. [Interacting]
     Active Substance: AMITRIPTYLINE HYDROCHLORIDE
     Indication: DEPRESSION
     Dosage: 50 MG EVERY EVENING, STARTED SEVERAL YEARS AGO

REACTIONS (9)
  - Fall [Recovering/Resolving]
  - Overdose [Unknown]
  - Back injury [Recovering/Resolving]
  - Diabetes mellitus [Unknown]
  - Drug interaction [Unknown]
  - Hypoaesthesia [Unknown]
  - Pain in extremity [Unknown]
  - Blood pressure abnormal [Unknown]
  - Thyroid disorder [Unknown]

NARRATIVE: CASE EVENT DATE: 2018
